FAERS Safety Report 18957519 (Version 1)
Quarter: 2021Q1

REPORT INFORMATION
  Report Type: Spontaneous
  Country: US (occurrence: US)
  Receive Date: 20210302
  Receipt Date: 20210302
  Transmission Date: 20210420
  Serious: Yes (Hospitalization)
  Sender: FDA-Public Use
  Company Number: None

PATIENT
  Sex: Female
  Weight: 126.4 kg

DRUGS (3)
  1. METHOTREXATE. [Suspect]
     Active Substance: METHOTREXATE
  2. CYTARABINE. [Concomitant]
     Active Substance: CYTARABINE
  3. MERCAPTOPURINE. [Concomitant]
     Active Substance: MERCAPTOPURINE

REACTIONS (4)
  - Body temperature increased [None]
  - Haemoglobin decreased [None]
  - Neutrophil count decreased [None]
  - Tachycardia [None]

NARRATIVE: CASE EVENT DATE: 20210222
